FAERS Safety Report 25288423 (Version 1)
Quarter: 2025Q2

REPORT INFORMATION
  Report Type: Spontaneous
  Country: NL (occurrence: NL)
  Receive Date: 20250509
  Receipt Date: 20250509
  Transmission Date: 20250716
  Serious: Yes (Death)
  Sender: INSUD PHARMA
  Company Number: NL-LABORATORIOS LICONSA S.A.-2504NL03474

PATIENT
  Age: 22 Year
  Sex: Male

DRUGS (8)
  1. OMEPRAZOLE [Suspect]
     Active Substance: OMEPRAZOLE
     Indication: Product used for unknown indication
  2. CITALOPRAM [Suspect]
     Active Substance: CITALOPRAM
  3. MIRTAZAPINE [Suspect]
     Active Substance: MIRTAZAPINE
  4. TRAMADOL [Suspect]
     Active Substance: TRAMADOL
  5. RIZATRIPTAN [Suspect]
     Active Substance: RIZATRIPTAN
  6. SUMATRIPTAN [Suspect]
     Active Substance: SUMATRIPTAN
  7. METOCLOPRAMIDE [Suspect]
     Active Substance: METOCLOPRAMIDE
  8. XANAX [Suspect]
     Active Substance: ALPRAZOLAM

REACTIONS (1)
  - Death [Fatal]

NARRATIVE: CASE EVENT DATE: 20230101
